FAERS Safety Report 22618436 (Version 1)
Quarter: 2023Q2

REPORT INFORMATION
  Report Type: Spontaneous
  Country: US (occurrence: US)
  Receive Date: 20230620
  Receipt Date: 20230620
  Transmission Date: 20230722
  Serious: No
  Sender: FDA-Public Use
  Company Number: US-SA-SAC20230616000773

PATIENT
  Age: 15 Year
  Sex: Female

DRUGS (1)
  1. DUPIXENT [Suspect]
     Active Substance: DUPILUMAB
     Indication: Dermatitis atopic
     Dosage: 200 MG, QOW
     Route: 058
     Dates: start: 20220217

REACTIONS (5)
  - Sleep disorder due to general medical condition, insomnia type [Not Recovered/Not Resolved]
  - Dermatitis atopic [Not Recovered/Not Resolved]
  - Blister [Not Recovered/Not Resolved]
  - Rash [Not Recovered/Not Resolved]
  - Skin discomfort [Not Recovered/Not Resolved]
